FAERS Safety Report 6671913-5 (Version None)
Quarter: 2010Q2

REPORT INFORMATION
  Report Type: 
  Country: None (occurrence: None)
  Receive Date: 20100407
  Receipt Date: 20100329
  Transmission Date: 20101027
  Serious: Yes (Other)
  Sender: FDA-Public Use
  Company Number: US-JNJCH-2010007671

PATIENT
  Sex: Female
  Weight: 108.9 kg

DRUGS (22)
  1. ZYRTEC [Suspect]
     Indication: HYPERSENSITIVITY
     Dosage: TEXT:10 MG ONCE DAILY
     Route: 048
  2. GABAPENTIN [Suspect]
     Indication: DIABETIC NEUROPATHY
     Dosage: TEXT:TWO CAPSULES 3X/ DAY
     Route: 048
  3. VICODIN [Suspect]
     Indication: ARTHRALGIA
     Dosage: TEXT:7.5MG/325MG EVERY FOUR HOURS
     Route: 048
  4. ZANAFLEX [Suspect]
     Indication: MUSCLE SPASMS
     Dosage: TEXT:2MG 2X/ DAY
     Route: 048
  5. VALSARTAN [Suspect]
     Indication: HYPERTENSION
     Dosage: TEXT:160 MG DAILY
     Route: 048
  6. BUPROPION HCL [Suspect]
     Indication: DEPRESSION
     Dosage: TEXT:300 MG DAILY
     Route: 048
  7. LOZOL [Suspect]
     Indication: FLUID RETENTION
     Dosage: TEXT:1.25MG DAILY
     Route: 048
  8. METFORMIN [Suspect]
     Indication: DIABETES MELLITUS
     Dosage: TEXT:500MG DAILY
     Route: 048
  9. METFORMIN HYDROCHLORIDE/SITAGLIPTIN [Suspect]
     Indication: DIABETES MELLITUS
     Dosage: TEXT:50/500MG DAILY
     Route: 048
  10. KLONOPIN [Suspect]
     Indication: ANXIETY
     Dosage: TEXT:0.5MG 2X/DAY
     Route: 048
  11. PRILOSEC [Suspect]
     Indication: GASTROOESOPHAGEAL REFLUX DISEASE
     Dosage: TEXT:20MG 2X/ DAY
     Route: 048
  12. CARAFATE [Suspect]
     Indication: GASTROOESOPHAGEAL REFLUX DISEASE
     Dosage: TEXT:1 GRAM 2X/ DAY
     Route: 048
  13. AGGRENOX [Suspect]
     Indication: DRUG USE FOR UNKNOWN INDICATION
     Dosage: TEXT:TWO TIMES A DAY
     Route: 048
  14. FLONASE [Suspect]
     Indication: HYPERSENSITIVITY
     Dosage: TEXT:50MCG TWO SPRAYS PER NOSTRIL DAILY
     Route: 045
  15. FLOVENT [Suspect]
     Indication: ASTHMA
     Dosage: TEXT:110MCG 2 PUFFS 2X/ DAY
     Route: 055
  16. VENTOLIN [Suspect]
     Indication: ASTHMA
     Dosage: TEXT:90MCG TWO PUFFS EVERY TWO HOURS
     Route: 055
  17. IMITREX [Suspect]
     Indication: MIGRAINE
     Dosage: TEXT:100MG AS NEEDED
     Route: 048
  18. NITROLINGUAL [Suspect]
     Indication: CHEST PAIN
     Dosage: TEXT:0.4MG SPRAY AS NEEDED
     Route: 050
  19. EPIPEN [Suspect]
     Indication: HYPERSENSITIVITY
     Dosage: TEXT:UNKNOWN
     Route: 062
  20. LORTAB [Suspect]
     Indication: DRUG USE FOR UNKNOWN INDICATION
     Dosage: TEXT:UNKNOWN
     Route: 048
  21. SIMVASTATIN [Suspect]
     Indication: DRUG USE FOR UNKNOWN INDICATION
     Dosage: TEXT:UNKNOWN
     Route: 048
  22. MULTI-VITAMINS [Suspect]
     Indication: DRUG USE FOR UNKNOWN INDICATION
     Dosage: TEXT:UNKNOWN
     Route: 048

REACTIONS (2)
  - CARDIAC DISORDER [None]
  - MEMORY IMPAIRMENT [None]
